FAERS Safety Report 10190929 (Version 1)
Quarter: 2014Q2

REPORT INFORMATION
  Report Type: Spontaneous
  Country: US (occurrence: None)
  Receive Date: 20140521
  Receipt Date: 20140521
  Transmission Date: 20141212
  Serious: Yes (Hospitalization)
  Sender: FDA-Public Use
  Company Number: None

PATIENT
  Age: 11 Year
  Sex: Male
  Weight: 84 kg

DRUGS (2)
  1. FLUOXETINE 10 MG [Suspect]
     Indication: ANXIETY DISORDER
     Dosage: 1 PILL QD ORAL
     Route: 048
  2. OMEPRAZOLE [Concomitant]

REACTIONS (2)
  - Overdose [None]
  - Suicide attempt [None]
